FAERS Safety Report 17719704 (Version 4)
Quarter: 2021Q3

REPORT INFORMATION
  Report Type: Spontaneous
  Country: US (occurrence: US)
  Receive Date: 20200428
  Receipt Date: 20210811
  Transmission Date: 20211014
  Serious: Yes (Other)
  Sender: FDA-Public Use
  Company Number: US-GILEAD-2020-0461586

PATIENT
  Age: 53 Year
  Sex: Male

DRUGS (1)
  1. VIREAD [Suspect]
     Active Substance: TENOFOVIR DISOPROXIL FUMARATE
     Indication: HIV INFECTION
     Dosage: UNK
     Route: 048
     Dates: start: 20071107, end: 20171203

REACTIONS (8)
  - Renal injury [Unknown]
  - Renal failure [Not Recovered/Not Resolved]
  - Skeletal injury [Unknown]
  - Tooth loss [Unknown]
  - Bone density decreased [Unknown]
  - Pain [Unknown]
  - Emotional distress [Unknown]
  - Chronic kidney disease [Unknown]

NARRATIVE: CASE EVENT DATE: 20080101
